FAERS Safety Report 8596708-7 (Version None)
Quarter: 2012Q3

REPORT INFORMATION
  Report Type: 
  Country: None (occurrence: None)
  Receive Date: 20120815
  Receipt Date: 20120806
  Transmission Date: 20120928
  Serious: Yes (Hospitalization)
  Sender: FDA-Public Use
  Company Number: JP-ELI_LILLY_AND_COMPANY-JP201208002054

PATIENT
  Age: 62 Year
  Sex: Female

DRUGS (4)
  1. METFORMIN HYDROCHLORIDE [Concomitant]
     Dosage: UNK
     Route: 048
     Dates: start: 20110304
  2. METFORMIN HYDROCHLORIDE [Concomitant]
     Dosage: UNK
     Route: 048
     Dates: start: 20110107
  3. METFORMIN HYDROCHLORIDE W/VILDAGLIPTIN [Concomitant]
     Dosage: UNK
     Dates: start: 20110204
  4. EXENATIDE LONG ACTING RELEASE [Suspect]
     Dosage: UNK
     Route: 058
     Dates: start: 20091020, end: 20101028

REACTIONS (1)
  - BLADDER CANCER [None]
